FAERS Safety Report 5161298-8 (Version None)
Quarter: 2006Q4

REPORT INFORMATION
  Report Type: 
  Country: None (occurrence: None)
  Receive Date: 20061130
  Receipt Date: 20061013
  Transmission Date: 20070319
  Serious: Yes (Other)
  Sender: FDA-Public Use
  Company Number: US-BRISTOL-MYERS SQUIBB COMPANY-13542758

PATIENT
  Age: 50 Year
  Sex: Male

DRUGS (3)
  1. ERBITUX [Suspect]
     Indication: NEOPLASM MALIGNANT
  2. CISPLATIN [Concomitant]
     Indication: NEOPLASM MALIGNANT
  3. RADIATION THERAPY [Concomitant]
     Indication: NEOPLASM MALIGNANT

REACTIONS (2)
  - RASH [None]
  - SKIN EXFOLIATION [None]
